FAERS Safety Report 4831965-1 (Version None)
Quarter: 2005Q4

REPORT INFORMATION
  Report Type: 
  Country: None (occurrence: None)
  Receive Date: 20051116
  Receipt Date: 20051102
  Transmission Date: 20060501
  Serious: Yes (Death, Hospitalization)
  Sender: FDA-Public Use
  Company Number: 2005-BP-19146RO

PATIENT
  Age: 63 Year
  Sex: Male

DRUGS (2)
  1. CYCLOPHOSPHAMIDE [Suspect]
     Indication: NEPHROTIC SYNDROME
     Dosage: 100 MG PO
     Route: 048
     Dates: start: 20020501, end: 20040101
  2. PREDNISONE [Suspect]
     Indication: NEPHROTIC SYNDROME
     Dosage: 25 MG PO
     Route: 048
     Dates: start: 20020501, end: 20040101

REACTIONS (27)
  - AFFECTIVE DISORDER [None]
  - ANURIA [None]
  - BLOOD ALBUMIN DECREASED [None]
  - CELL-MEDIATED IMMUNE DEFICIENCY [None]
  - CHOLESTASIS [None]
  - COAGULOPATHY [None]
  - CYTOMEGALOVIRUS ANTIGEN POSITIVE [None]
  - DEATH OF SPOUSE [None]
  - DEPRESSION [None]
  - DIALYSIS [None]
  - DYSPNOEA [None]
  - HEPATIC FAILURE [None]
  - HEPATIC STEATOSIS [None]
  - HEPATITIS B [None]
  - HEPATOMEGALY [None]
  - HYPERPYREXIA [None]
  - INJURY [None]
  - INTERNATIONAL NORMALISED RATIO INCREASED [None]
  - MULTI-ORGAN FAILURE [None]
  - OEDEMA [None]
  - OLIGURIA [None]
  - PANCYTOPENIA [None]
  - PATHOGEN RESISTANCE [None]
  - PNEUMONIA [None]
  - PROTHROMBIN LEVEL DECREASED [None]
  - RENAL FAILURE ACUTE [None]
  - TREATMENT NONCOMPLIANCE [None]
